FAERS Safety Report 20574222 (Version 2)
Quarter: 2022Q2

REPORT INFORMATION
  Report Type: Spontaneous
  Country: FR (occurrence: FR)
  Receive Date: 20220309
  Receipt Date: 20220413
  Transmission Date: 20220721
  Serious: Yes (Death, Hospitalization, Other)
  Sender: FDA-Public Use
  Company Number: FR-009507513-2203FRA002172

PATIENT
  Age: 73 Year
  Sex: Male
  Weight: 59 kg

DRUGS (1)
  1. KEYTRUDA [Suspect]
     Active Substance: PEMBROLIZUMAB
     Indication: Colorectal cancer metastatic
     Dosage: 200 MILLIGRAM
     Route: 042
     Dates: start: 20220203

REACTIONS (2)
  - COVID-19 [Fatal]
  - Portal vein thrombosis [Unknown]

NARRATIVE: CASE EVENT DATE: 20220201
